FAERS Safety Report 15751247 (Version 2)
Quarter: 2023Q1

REPORT INFORMATION
  Report Type: Spontaneous
  Country: US (occurrence: US)
  Receive Date: 20181221
  Receipt Date: 20230207
  Transmission Date: 20230418
  Serious: Yes (Hospitalization, Other)
  Sender: FDA-Public Use
  Company Number: US-TEVA-2018-US-988271

PATIENT
  Sex: Female

DRUGS (4)
  1. CLONAZEPAM [Suspect]
     Active Substance: CLONAZEPAM
     Indication: Insomnia
     Route: 065
     Dates: start: 2016
  2. CLONAZEPAM [Suspect]
     Active Substance: CLONAZEPAM
     Indication: Panic attack
     Route: 065
     Dates: start: 20181127
  3. CLONAZEPAM [Suspect]
     Active Substance: CLONAZEPAM
     Indication: Anxiety
  4. CLONAZEPAM [Suspect]
     Active Substance: CLONAZEPAM
     Indication: Agoraphobia

REACTIONS (14)
  - Palpitations [Unknown]
  - Suicidal ideation [Unknown]
  - Diarrhoea [Unknown]
  - Migraine [Unknown]
  - Vision blurred [Unknown]
  - Drug ineffective [Unknown]
  - Abdominal pain [Unknown]
  - Vomiting [Unknown]
  - Nausea [Unknown]
  - Photophobia [Unknown]
  - Myalgia [Unknown]
  - Arthralgia [Unknown]
  - Diplopia [Unknown]
  - Product substitution issue [Unknown]

NARRATIVE: CASE EVENT DATE: 20181127
